FAERS Safety Report 9034353 (Version 1)
Quarter: 2013Q1

REPORT INFORMATION
  Report Type: Spontaneous
  Country: US (occurrence: None)
  Receive Date: 20130116
  Receipt Date: 20130116
  Transmission Date: 20140127
  Serious: Yes (Disabling, Other)
  Sender: FDA-Public Use
  Company Number: None

PATIENT
  Sex: Female

DRUGS (1)
  1. AXONA [Suspect]
     Indication: DEMENTIA ALZHEIMER^S TYPE
     Dates: start: 2010

REACTIONS (1)
  - Dementia Alzheimer^s type [None]
